FAERS Safety Report 14127112 (Version 1)
Quarter: 2017Q4

REPORT INFORMATION
  Report Type: Spontaneous
  Country: FR (occurrence: FR)
  Receive Date: 20171026
  Receipt Date: 20171026
  Transmission Date: 20180321
  Serious: Yes (Death, Congenital Anomaly, Other)
  Sender: FDA-Public Use
  Company Number: FR-CONCORDIA PHARMACEUTICALS INC.-MAPI_00011432

PATIENT
  Sex: Male

DRUGS (12)
  1. VENTOLINE [Concomitant]
     Active Substance: ALBUTEROL
  2. PLAQUENIL [Suspect]
     Active Substance: HYDROXYCHLOROQUINE SULFATE
     Indication: MATERNAL EXPOSURE TIMING UNSPECIFIED
     Route: 064
     Dates: start: 20150822
  3. OVITRELLE [Concomitant]
     Active Substance: CHORIOGONADOTROPIN ALFA
  4. CETROTIDE [Concomitant]
     Active Substance: CETRORELIX ACETATE
  5. ASPEGIC [Concomitant]
     Active Substance: ASPIRIN DL-LYSINE
  6. ESTREVA [Concomitant]
     Active Substance: ESTRADIOL
  7. GONAL-F [Concomitant]
     Active Substance: FOLLITROPIN
  8. SPECIAFOLDINE [Concomitant]
     Active Substance: FOLIC ACID
  9. SPASFON [Concomitant]
     Active Substance: PHLOROGLUCINOL\1,3,5-TRIMETHOXYBENZENE
  10. ESTIMA (PROGESTERONE) [Concomitant]
     Active Substance: PROGESTERONE
  11. LUVERIS [Concomitant]
     Active Substance: LUTROPIN ALFA
  12. INNOVAIR [Concomitant]
     Active Substance: BECLOMETHASONE DIPROPIONATE\FORMOTEROL

REACTIONS (5)
  - Foetal exposure during pregnancy [Not Recovered/Not Resolved]
  - Vascular calcification [Not Recovered/Not Resolved]
  - Pericardial effusion [Not Recovered/Not Resolved]
  - Heart valve calcification [Not Recovered/Not Resolved]
  - Hydrops foetalis [Fatal]

NARRATIVE: CASE EVENT DATE: 20150822
